FAERS Safety Report 4856091-7 (Version None)
Quarter: 2005Q4

REPORT INFORMATION
  Report Type: 
  Country: None (occurrence: None)
  Receive Date: 20051216
  Receipt Date: 20050128
  Transmission Date: 20060501
  Serious: Yes (Hospitalization)
  Sender: FDA-Public Use
  Company Number: US-MERCK-0501USA04514

PATIENT
  Age: 48 Year
  Sex: Male
  Weight: 123 kg

DRUGS (6)
  1. VIOXX [Suspect]
     Indication: JOINT INJURY
     Route: 048
     Dates: start: 20021001
  2. VIOXX [Suspect]
     Route: 048
     Dates: start: 20010101
  3. VIOXX [Suspect]
     Route: 048
     Dates: start: 20030121
  4. VIOXX [Suspect]
     Indication: JOINT SPRAIN
     Route: 048
     Dates: start: 20021001
  5. VIOXX [Suspect]
     Route: 048
     Dates: start: 20010101
  6. VIOXX [Suspect]
     Route: 048
     Dates: start: 20030121

REACTIONS (9)
  - ACUTE MYOCARDIAL INFARCTION [None]
  - CARDIAC FAILURE CONGESTIVE [None]
  - CORONARY ARTERY DISEASE [None]
  - DYSPNOEA [None]
  - JOINT INJURY [None]
  - MITRAL VALVE INCOMPETENCE [None]
  - OBESITY [None]
  - SLEEP APNOEA SYNDROME [None]
  - TRICUSPID VALVE INCOMPETENCE [None]
